FAERS Safety Report 8440385-2 (Version None)
Quarter: 2012Q2

REPORT INFORMATION
  Report Type: 
  Country: None (occurrence: None)
  Receive Date: 20120615
  Receipt Date: 20120613
  Transmission Date: 20120825
  Serious: Yes (Death, Hospitalization, Other)
  Sender: FDA-Public Use
  Company Number: GB-GENZYME-CAMP-1002263

PATIENT
  Sex: Female
  Weight: 46.3 kg

DRUGS (13)
  1. MABCAMPATH [Suspect]
     Indication: T-CELL LYMPHOMA
     Dosage: 30 MG, ONCE ON DAY 1 AND 3
     Route: 058
     Dates: start: 20111207, end: 20120322
  2. CYCLOPHOSPHAMIDE [Suspect]
     Indication: T-CELL LYMPHOMA
     Dosage: 1150 MG, ONCE
     Route: 042
     Dates: start: 20111121, end: 20120320
  3. LEVOTHYROXINE SODIUM [Concomitant]
     Indication: HYPOTHYROIDISM
     Dosage: 125 MCG, QD
     Route: 048
  4. LANSOPRAZOLE [Concomitant]
     Indication: PROPHYLAXIS AGAINST GASTROINTESTINAL ULCER
     Dosage: 15 MG, QD
     Route: 048
     Dates: start: 20111121
  5. LENOGRASTIM [Concomitant]
     Indication: COLONY STIMULATING FACTOR THERAPY
     Dosage: 263 MCG, QD
     Route: 058
     Dates: start: 20120326, end: 20120331
  6. PREDNISOLONE [Suspect]
     Indication: T-CELL LYMPHOMA
     Dosage: 100 MG, DAY 1-5
     Route: 048
     Dates: start: 20111121, end: 20120320
  7. COTRIM [Concomitant]
     Indication: ANTIFUNGAL PROPHYLAXIS
     Dosage: 480 MG, QD
     Route: 048
     Dates: start: 20111121
  8. ONDANSETRON [Concomitant]
     Indication: MALAISE
     Dosage: 8 MG, BID
     Route: 048
     Dates: start: 20120320, end: 20120321
  9. DOXORUBICIN HCL [Suspect]
     Indication: T-CELL LYMPHOMA
     Dosage: 75 MG, ONCE
     Route: 042
     Dates: start: 20111121, end: 20120320
  10. DOMPERIDONE [Concomitant]
     Indication: MALAISE
     Dosage: 10-20 MG, TID,PRN
     Route: 048
     Dates: start: 20111121
  11. VINCRISTINE SULFATE [Suspect]
     Indication: T-CELL LYMPHOMA
     Dosage: 2 MG, ONCE
     Route: 042
     Dates: start: 20111121, end: 20120320
  12. VALGANCICLOVIR [Concomitant]
     Indication: ANTIVIRAL TREATMENT
     Dosage: 900 MG, BID
     Route: 048
     Dates: start: 20120207, end: 20120403
  13. ENOXAPARIN [Concomitant]
     Indication: ANTICOAGULANT THERAPY
     Dosage: 40 MG, QD
     Route: 058
     Dates: start: 20120410

REACTIONS (6)
  - BRONCHOPNEUMONIA [None]
  - LOWER EXTREMITY MASS [None]
  - INFECTION [None]
  - NEUTROPENIC SEPSIS [None]
  - OXYGEN SATURATION DECREASED [None]
  - DIARRHOEA [None]
